FAERS Safety Report 7047625-5 (Version None)
Quarter: 2010Q4

REPORT INFORMATION
  Report Type: 
  Country: None (occurrence: None)
  Receive Date: 20101015
  Receipt Date: 20101004
  Transmission Date: 20110411
  Serious: Yes (Hospitalization)
  Sender: FDA-Public Use
  Company Number: GB-WATSON-2010-13490

PATIENT
  Age: 65 Year
  Sex: Male

DRUGS (1)
  1. CLARITHROMYCIN [Suspect]
     Indication: PNEUMONIA
     Dosage: UNK

REACTIONS (5)
  - EOSINOPHILIC PNEUMONIA [None]
  - GLOMERULONEPHRITIS MINIMAL LESION [None]
  - HYPERSENSITIVITY [None]
  - RASH PRURITIC [None]
  - TUBULOINTERSTITIAL NEPHRITIS [None]
